FAERS Safety Report 6704675-3 (Version None)
Quarter: 2010Q2

REPORT INFORMATION
  Report Type: 
  Country: None (occurrence: None)
  Receive Date: 20100430
  Receipt Date: 20100426
  Transmission Date: 20101027
  Serious: Yes (Other)
  Sender: FDA-Public Use
  Company Number: US-BAYER-201014725BCC

PATIENT
  Sex: Male

DRUGS (3)
  1. ASPIRIN [Suspect]
     Indication: DRUG USE FOR UNKNOWN INDICATION
     Route: 065
  2. PLAVIX [Suspect]
     Indication: STENT PLACEMENT
     Route: 065
     Dates: start: 20100201
  3. PREVACID [Concomitant]

REACTIONS (4)
  - ABDOMINAL PAIN UPPER [None]
  - BLOOD TRIGLYCERIDES INCREASED [None]
  - GASTRITIS [None]
  - HAEMATOCHEZIA [None]
